FAERS Safety Report 13233694 (Version 1)
Quarter: 2017Q1

REPORT INFORMATION
  Report Type: Other
  Country: US (occurrence: US)
  Receive Date: 20170215
  Receipt Date: 20170215
  Transmission Date: 20170428
  Serious: Yes (Other)
  Sender: FDA-Public Use
  Company Number: US-LUPIN PHARMACEUTICALS INC.-2017-00635

PATIENT
  Age: 63 Year
  Sex: Male

DRUGS (4)
  1. CEFTAZIDIME. [Concomitant]
     Active Substance: CEFTAZIDIME
     Indication: HYPOPYON
  2. VANCOMYCIN [Suspect]
     Active Substance: VANCOMYCIN
     Indication: HYPOPYON
     Dosage: 1 MG/0.1 ML
  3. VANCOMYCIN [Suspect]
     Active Substance: VANCOMYCIN
     Indication: VITRITIS
  4. CEFTAZIDIME. [Concomitant]
     Active Substance: CEFTAZIDIME
     Indication: VITRITIS

REACTIONS (1)
  - Retinal vasculitis [Unknown]
